FAERS Safety Report 20877040 (Version 1)
Quarter: 2022Q2

REPORT INFORMATION
  Report Type: Spontaneous
  Country: US (occurrence: None)
  Receive Date: 20220526
  Receipt Date: 20220526
  Transmission Date: 20220720
  Serious: Yes (Hospitalization)
  Sender: FDA-Public Use
  Company Number: None

PATIENT
  Age: 62 Year
  Sex: Female
  Weight: 59.4 kg

DRUGS (1)
  1. TECHNETIUM TC-99M TILMANOCEPT [Suspect]
     Active Substance: TECHNETIUM TC-99M TILMANOCEPT
     Dates: end: 20220502

REACTIONS (5)
  - Haemorrhage [None]
  - Mouth haemorrhage [None]
  - Tongue haemorrhage [None]
  - Arterial haemorrhage [None]
  - Pain [None]

NARRATIVE: CASE EVENT DATE: 20220510
